FAERS Safety Report 7159915-6 (Version None)
Quarter: 2010Q4

REPORT INFORMATION
  Report Type: 
  Country: None (occurrence: None)
  Receive Date: 20101214
  Receipt Date: 20101212
  Transmission Date: 20110411
  Serious: Yes (Death)
  Sender: FDA-Public Use
  Company Number: PHHY2010NL84344

PATIENT
  Sex: Male

DRUGS (2)
  1. ZOMETA [Suspect]
     Indication: METASTATIC RENAL CELL CARCINOMA
     Dosage: 4 MG/5 ML
     Route: 042
     Dates: start: 20100217
  2. ZOMETA [Suspect]
     Dosage: 4 MG/5 ML
     Dates: start: 20101116

REACTIONS (1)
  - CEREBRAL HAEMORRHAGE [None]
